FAERS Safety Report 5027592-6 (Version None)
Quarter: 2006Q2

REPORT INFORMATION
  Report Type: 
  Country: None (occurrence: None)
  Receive Date: 20060614
  Receipt Date: 20060614
  Transmission Date: 20061013
  Serious: Yes (Hospitalization)
  Sender: FDA-Public Use
  Company Number: None

PATIENT
  Sex: Male
  Weight: 84.369 kg

DRUGS (3)
  1. SUBOXONE [Suspect]
     Indication: DRUG DEPENDENCE
     Dosage: 16 MG -2TABS-  DAILY  SL
     Dates: start: 20060509, end: 20060519
  2. ABILIFY [Concomitant]
  3. PROPRANOLOL [Concomitant]

REACTIONS (1)
  - HEPATITIS C POSITIVE [None]
